FAERS Safety Report 10029205 (Version 1)
Quarter: 2014Q1

REPORT INFORMATION
  Report Type: Spontaneous
  Country: GR (occurrence: GR)
  Receive Date: 20140321
  Receipt Date: 20140321
  Transmission Date: 20141002
  Serious: Yes (Hospitalization)
  Sender: FDA-Public Use
  Company Number: PHHY2014GR029587

PATIENT
  Age: 37 Year
  Sex: Female

DRUGS (3)
  1. HYDROXYCHLOROQUINE SULPHATE [Suspect]
     Indication: PSORIASIS
     Dosage: 100 MG, UNK
     Route: 048
  2. METHYLPREDNISOLONE [Suspect]
     Indication: PSORIASIS
  3. MOMETASONE [Suspect]
     Route: 061

REACTIONS (8)
  - Erythrodermic psoriasis [Recovered/Resolved]
  - Rash pustular [Recovered/Resolved]
  - Dermatitis exfoliative [Recovered/Resolved]
  - Pustular psoriasis [Recovered/Resolved]
  - Face oedema [Recovered/Resolved]
  - Skin lesion [Recovered/Resolved]
  - Leukocytosis [Recovered/Resolved]
  - Maternal exposure during pregnancy [Unknown]
